FAERS Safety Report 18999740 (Version 1)
Quarter: 2021Q1

REPORT INFORMATION
  Report Type: Spontaneous
  Country: FR (occurrence: FR)
  Receive Date: 20210311
  Receipt Date: 20210311
  Transmission Date: 20210420
  Serious: Yes (Hospitalization)
  Sender: FDA-Public Use
  Company Number: FR-PFIZER INC-2021232340

PATIENT
  Age: 36 Year
  Sex: Male

DRUGS (4)
  1. DIAZEPAM. [Suspect]
     Active Substance: DIAZEPAM
     Dosage: 20 MG, SINGLE
     Route: 048
     Dates: start: 20210116, end: 20210116
  2. SERESTA [Suspect]
     Active Substance: OXAZEPAM
     Dosage: 400 MG, SINGLE
     Route: 048
     Dates: start: 20210116, end: 20210116
  3. BROMAZEPAM [Suspect]
     Active Substance: BROMAZEPAM
     Dosage: 96 MG, SINGLE
     Route: 048
     Dates: start: 20210116, end: 20210116
  4. ALPRAZOLAM. [Suspect]
     Active Substance: ALPRAZOLAM
     Dosage: 0.5 MG, SINGLE
     Route: 048
     Dates: start: 20210116, end: 20210116

REACTIONS (2)
  - Suicide attempt [Recovered/Resolved]
  - Somnolence [Recovered/Resolved]

NARRATIVE: CASE EVENT DATE: 20210116
